FAERS Safety Report 14746522 (Version 3)
Quarter: 2018Q3

REPORT INFORMATION
  Report Type: Spontaneous
  Country: US (occurrence: US)
  Receive Date: 20180411
  Receipt Date: 20180709
  Transmission Date: 20181010
  Serious: Yes (Hospitalization)
  Sender: FDA-Public Use
  Company Number: US-PFIZER INC-2018148798

PATIENT
  Age: 4 Year
  Sex: Male

DRUGS (15)
  1. CORTEF [Concomitant]
     Active Substance: HYDROCORTISONE
     Indication: INFECTION
     Dosage: 2.5 ML, UNK (DOUBLE DOSE FOR FEVER OR INFECTION)
     Route: 048
  2. GENOTROPIN MQ [Suspect]
     Active Substance: SOMATROPIN
     Indication: BLOOD GROWTH HORMONE
     Dosage: 0.6 MG, DAILY
     Route: 058
     Dates: start: 201312
  3. GENOTROPIN MQ [Suspect]
     Active Substance: SOMATROPIN
     Indication: HYPOPITUITARISM
     Dosage: 0.8 MG, DAILY
     Route: 058
     Dates: start: 20171211
  4. ASPIRIN. [Concomitant]
     Active Substance: ASPIRIN
     Dosage: 40.5 MG, 1X/DAY(0.5 TABLET ONCE A DAY)
     Route: 048
  5. CORTEF [Concomitant]
     Active Substance: HYDROCORTISONE
     Indication: PYREXIA
     Dosage: 1.25 ML, 3X/DAY
     Route: 048
     Dates: start: 20151231
  6. RANITIDINE HCL [Concomitant]
     Active Substance: RANITIDINE HYDROCHLORIDE
     Dosage: 5 ML, 2X/DAY
     Route: 048
  7. LEVETIRACETAM. [Concomitant]
     Active Substance: LEVETIRACETAM
     Dosage: 4.5 ML, 2X/DAY (EVERY 12 HRS)
     Route: 048
  8. LEVOTHYROXINE SODIUM. [Concomitant]
     Active Substance: LEVOTHYROXINE SODIUM
     Dosage: 37.5 UG, DAILY (1.5 TABS DAILY)
     Route: 048
  9. VIMPAT [Concomitant]
     Active Substance: LACOSAMIDE
     Dosage: 5 ML, 2X/DAY (EVERY 12 HOURS)
     Route: 042
  10. DIASTAT [Concomitant]
     Active Substance: DIAZEPAM
     Dosage: 2?3 RECTAL AS NEEDED
     Route: 054
  11. PHENOBARBITAL. [Concomitant]
     Active Substance: PHENOBARBITAL
     Dosage: 30 MG, 2X/DAY (EVERY 12 HRS)
     Route: 048
  12. IBUPROFEN. [Concomitant]
     Active Substance: IBUPROFEN
     Dosage: 3 ML, 2X/DAY
     Route: 048
  13. ACETAMINOPHEN. [Concomitant]
     Active Substance: ACETAMINOPHEN
     Dosage: 160 MG, AS NEEDED (160 MG AS NEEDED ORALLY EVERY 4 HRS)
     Route: 048
  14. SOLU?CORTEF [Concomitant]
     Active Substance: HYDROCORTISONE SODIUM SUCCINATE
     Indication: HYPOGLYCAEMIA
     Dosage: 1 ML, AS NEEDED
  15. ONFI [Concomitant]
     Active Substance: CLOBAZAM
     Dosage: 0.5 ML, 2X/DAY
     Route: 048

REACTIONS (2)
  - Drug ineffective [Unknown]
  - Weight increased [Unknown]

NARRATIVE: CASE EVENT DATE: 20180404
